FAERS Safety Report 4580792-1 (Version None)
Quarter: 2005Q1

REPORT INFORMATION
  Report Type: 
  Country: None (occurrence: None)
  Receive Date: 20050127
  Receipt Date: 20040818
  Transmission Date: 20050727
  Serious: No
  Sender: FDA-Public Use
  Company Number: USA040875810

PATIENT
  Age: 51 Year
  Sex: Female
  Weight: 82 kg

DRUGS (4)
  1. STRATTERA [Suspect]
     Indication: ATTENTION DEFICIT/HYPERACTIVITY DISORDER
     Dosage: 40 MG DAY
     Dates: start: 20040811
  2. LEXAPRO [Concomitant]
  3. ALLEGRA-D [Concomitant]
  4. ADVIL [Concomitant]

REACTIONS (5)
  - ANXIETY [None]
  - DRUG INEFFECTIVE [None]
  - HUNGER [None]
  - NAUSEA [None]
  - PSYCHOMOTOR HYPERACTIVITY [None]
